FAERS Safety Report 12328684 (Version 1)
Quarter: 2016Q2

REPORT INFORMATION
  Report Type: Spontaneous
  Country: US (occurrence: US)
  Receive Date: 20160503
  Receipt Date: 20160503
  Transmission Date: 20160815
  Serious: No
  Sender: FDA-Public Use
  Company Number: US-BEH-2015050126

PATIENT
  Age: 28 Year
  Sex: Female
  Weight: 60 kg

DRUGS (5)
  1. HIZENTRA [Suspect]
     Active Substance: HUMAN IMMUNOGLOBULIN G
     Indication: IMMUNODEFICIENCY
     Route: 058
     Dates: start: 20150326, end: 20150326
  2. HIZENTRA [Suspect]
     Active Substance: HUMAN IMMUNOGLOBULIN G
     Indication: HUMORAL IMMUNE DEFECT
     Route: 058
     Dates: start: 20150326, end: 20150326
  3. DIPHENHYDRAMINE. [Concomitant]
     Active Substance: DIPHENHYDRAMINE
  4. EPIPEN [Concomitant]
     Active Substance: EPINEPHRINE
  5. ACETAMINOPHEN. [Concomitant]
     Active Substance: ACETAMINOPHEN

REACTIONS (1)
  - Infusion site discomfort [Recovered/Resolved]

NARRATIVE: CASE EVENT DATE: 20150326
